FAERS Safety Report 19198796 (Version 1)
Quarter: 2021Q2

REPORT INFORMATION
  Report Type: Spontaneous
  Country: US (occurrence: US)
  Receive Date: 20210429
  Receipt Date: 20210429
  Transmission Date: 20210717
  Serious: Yes (Other)
  Sender: FDA-Public Use
  Company Number: US-ROCHE-2714566

PATIENT
  Age: 79 Year
  Sex: Female

DRUGS (6)
  1. LASIX [Concomitant]
     Active Substance: FUROSEMIDE
     Dosage: ONGOING UNKNOWN
  2. ARIMIDEX [Concomitant]
     Active Substance: ANASTROZOLE
  3. IRON [Concomitant]
     Active Substance: IRON
  4. FOLIC ACID. [Concomitant]
     Active Substance: FOLIC ACID
  5. KADCYLA [Suspect]
     Active Substance: ADO-TRASTUZUMAB EMTANSINE
     Indication: BREAST CANCER METASTATIC
     Dosage: ONGOING UNKNOWN
     Route: 042
  6. XANAX [Concomitant]
     Active Substance: ALPRAZOLAM
     Dosage: 0.25 (UNIT NOT REPORTED)

REACTIONS (3)
  - Intentional product misuse [Unknown]
  - Off label use [Unknown]
  - Haemorrhage [Unknown]
